FAERS Safety Report 8201152-8 (Version None)
Quarter: 2012Q1

REPORT INFORMATION
  Report Type: 
  Country: None (occurrence: None)
  Receive Date: 20120312
  Receipt Date: 20120306
  Transmission Date: 20120608
  Serious: Yes (Other)
  Sender: FDA-Public Use
  Company Number: DE-JNJFOC-20120113130

PATIENT
  Sex: Female

DRUGS (1)
  1. RISPERDAL [Suspect]
     Indication: DRUG LEVEL INCREASED
     Route: 048
     Dates: start: 20020101, end: 20070101

REACTIONS (2)
  - SUICIDAL IDEATION [None]
  - DEPRESSION [None]
